FAERS Safety Report 10912395 (Version 1)
Quarter: 2015Q1

REPORT INFORMATION
  Report Type: Spontaneous
  Country: US (occurrence: None)
  Receive Date: 20150310
  Receipt Date: 20150310
  Transmission Date: 20150721
  Serious: No
  Sender: FDA-Public Use
  Company Number: None

PATIENT
  Age: 94 Year
  Sex: Female

DRUGS (15)
  1. CLOPIDOGREL [Suspect]
     Active Substance: CLOPIDOGREL BISULFATE
     Indication: CARDIOVASCULAR DISORDER
     Dosage: 1 PILL
     Route: 048
     Dates: start: 20150127, end: 20150220
  2. COSOPT [Concomitant]
     Active Substance: DORZOLAMIDE HYDROCHLORIDE\TIMOLOL MALEATE
  3. CALCIUM [Concomitant]
     Active Substance: CALCIUM
  4. POTASSIUM ER [Concomitant]
  5. SPIRONOLACTONE. [Concomitant]
     Active Substance: SPIRONOLACTONE
  6. PRESERVISION [Concomitant]
     Active Substance: MINERALS\VITAMINS
  7. ASPIRIN. [Concomitant]
     Active Substance: ASPIRIN
  8. ONE A DAY CENTRUM [Concomitant]
  9. LATRANOPROST [Concomitant]
  10. FLUTICASONE [Concomitant]
     Active Substance: FLUTICASONE\FLUTICASONE PROPIONATE
  11. TORSEMIDE. [Concomitant]
     Active Substance: TORSEMIDE
  12. SIMVASTATIN. [Concomitant]
     Active Substance: SIMVASTATIN
  13. VITAMIN C [Concomitant]
     Active Substance: ASCORBIC ACID
  14. CARTIA XT [Concomitant]
     Active Substance: DILTIAZEM HYDROCHLORIDE
  15. FISH OIL [Concomitant]
     Active Substance: FISH OIL

REACTIONS (3)
  - Drug effect decreased [None]
  - Product substitution issue [None]
  - Somnolence [None]

NARRATIVE: CASE EVENT DATE: 20150127
